FAERS Safety Report 8515772-4 (Version None)
Quarter: 2012Q3

REPORT INFORMATION
  Report Type: 
  Country: None (occurrence: None)
  Receive Date: 20120705
  Receipt Date: 20120622
  Transmission Date: 20120928
  Serious: Yes (Hospitalization, Other)
  Sender: FDA-Public Use
  Company Number: 2012SP032456

PATIENT
  Age: 60 Year
  Sex: Male
  Weight: 64 kg

DRUGS (8)
  1. TELAVIC (ANTIVIRALS NOS) [Suspect]
     Indication: HEPATITIS C
     Dosage: 1500 MG;QD;PO
     Route: 048
     Dates: start: 20120404, end: 20120522
  2. REBETOL [Suspect]
     Indication: HEPATITIS C
     Dosage: 600 MG;QD;PO
     Route: 048
     Dates: start: 20120404, end: 20120522
  3. ALLOPURINOL [Concomitant]
  4. MIGLITOL [Concomitant]
  5. RABEPRAZOLE SODIUM [Concomitant]
  6. NORVASC [Concomitant]
  7. PEG-INTRON [Suspect]
     Indication: HEPATITIS C
     Dosage: 1.5 MCG;KG;QW;PARN
     Dates: start: 20120404, end: 20120522
  8. LOXONIN (LOXOPROFEN) [Suspect]
     Indication: PRODUCT USED FOR UNKNOWN INDICATION
     Dosage: 60 MG;PRN;PO
     Route: 048
     Dates: end: 20120522

REACTIONS (10)
  - SMALL INTESTINE ULCER [None]
  - PLATELET COUNT DECREASED [None]
  - HYPERURICAEMIA [None]
  - CONDITION AGGRAVATED [None]
  - WHITE BLOOD CELL COUNT DECREASED [None]
  - DIABETES MELLITUS [None]
  - SMALL INTESTINAL HAEMORRHAGE [None]
  - BLOOD CREATININE INCREASED [None]
  - ANAEMIA [None]
  - INCORRECT DOSE ADMINISTERED [None]
